FAERS Safety Report 20578854 (Version 1)
Quarter: 2022Q1

REPORT INFORMATION
  Report Type: Report from Study
  Country: CN (occurrence: CN)
  Receive Date: 20220310
  Receipt Date: 20220310
  Transmission Date: 20220423
  Serious: Yes (Other)
  Sender: FDA-Public Use
  Company Number: CN-NOVARTISPH-NVSC2021CN099436

PATIENT
  Age: 70 Year
  Sex: Male

DRUGS (7)
  1. ENTRESTO [Suspect]
     Active Substance: SACUBITRIL\VALSARTAN
     Indication: Cardiac failure chronic
     Dosage: 25 MG
     Route: 048
     Dates: start: 20200820, end: 20201014
  2. ENTRESTO [Suspect]
     Active Substance: SACUBITRIL\VALSARTAN
     Dosage: 50 MG
     Route: 048
     Dates: start: 20201015
  3. COMPOUND VITAMIN B [Concomitant]
     Indication: Cardiac failure
     Dosage: 1 DOSAGE FORM, UNKNOWN
     Route: 048
     Dates: start: 20210111, end: 20210125
  4. AMIODARONE [Concomitant]
     Active Substance: AMIODARONE
     Indication: Pre-existing disease
     Dosage: 0.2 G, UNKNOWN
     Route: 048
     Dates: start: 20210112, end: 20210121
  5. MOSAPRIDE [Concomitant]
     Active Substance: MOSAPRIDE
     Indication: Pre-existing disease
     Dosage: 5 MG, UNKNOWN
     Route: 048
     Dates: start: 20210112, end: 20210116
  6. ATORVASTATIN CALCIUM ANHYDROUS [Concomitant]
     Active Substance: ATORVASTATIN CALCIUM ANHYDROUS
     Indication: Pre-existing disease
     Dosage: 20 MG, UNKNOWN
     Route: 048
     Dates: start: 20210111, end: 20210116
  7. PANTOPRAZOLE SODIUM ANHYDROUS [Concomitant]
     Active Substance: PANTOPRAZOLE SODIUM ANHYDROUS
     Indication: Prophylaxis
     Dosage: 20 MG
     Route: 048
     Dates: start: 20210111, end: 20210125

REACTIONS (4)
  - Acute kidney injury [Recovering/Resolving]
  - Pneumonia [Recovered/Resolved]
  - Chest discomfort [Recovered/Resolved]
  - Wrong technique in product usage process [Unknown]

NARRATIVE: CASE EVENT DATE: 20201015
